FAERS Safety Report 9332843 (Version 1)
Quarter: 2013Q2

REPORT INFORMATION
  Report Type: Spontaneous
  Country: CZ (occurrence: None)
  Receive Date: 20130603
  Receipt Date: 20130603
  Transmission Date: 20140414
  Serious: Yes (Hospitalization, Other)
  Sender: FDA-Public Use
  Company Number: 2013P1006453

PATIENT
  Age: 66 Year
  Sex: Female
  Weight: 81 kg

DRUGS (12)
  1. METOPROLOL [Suspect]
  2. PROPAFENONE [Suspect]
  3. PROPAFENONE [Suspect]
     Indication: PROPHYLAXIS
  4. CYCLOSPORINE [Concomitant]
  5. AZATHIOPRINE [Concomitant]
  6. LOSARTAN [Concomitant]
  7. RILMENIDINE [Concomitant]
  8. FUROSEMIDE [Concomitant]
  9. CAPTOPRIL [Concomitant]
  10. ACETYLSALICYCLIC ACID [Concomitant]
  11. ISOSORBIDE MONONITRATE [Concomitant]
  12. AMLODIPINE [Concomitant]

REACTIONS (4)
  - Drug interaction [None]
  - Cardiac failure [None]
  - Atrial fibrillation [None]
  - Drug level increased [None]
